FAERS Safety Report 12741239 (Version 1)
Quarter: 2016Q3

REPORT INFORMATION
  Report Type: Spontaneous
  Country: US (occurrence: US)
  Receive Date: 20160914
  Receipt Date: 20160914
  Transmission Date: 20161109
  Serious: Yes (Hospitalization, Other)
  Sender: FDA-Public Use
  Company Number: US-TEVA-692126USA

PATIENT
  Age: 63 Year

DRUGS (1)
  1. COPAXONE [Suspect]
     Active Substance: GLATIRAMER ACETATE
     Indication: MULTIPLE SCLEROSIS
     Route: 058
     Dates: start: 20160226

REACTIONS (3)
  - Multiple sclerosis relapse [Unknown]
  - Inappropriate schedule of drug administration [Unknown]
  - Influenza like illness [Unknown]

NARRATIVE: CASE EVENT DATE: 2016
